FAERS Safety Report 7643848-2 (Version None)
Quarter: 2011Q3

REPORT INFORMATION
  Report Type: 
  Country: None (occurrence: None)
  Receive Date: 20110729
  Receipt Date: 20100726
  Transmission Date: 20111222
  Serious: No
  Sender: FDA-Public Use
  Company Number: US-GLAXOSMITHKLINE-A0872330A

PATIENT
  Age: 49 Year
  Sex: Female

DRUGS (3)
  1. XANAX [Concomitant]
  2. OXYCODONE HCL [Concomitant]
  3. IMITREX [Suspect]
     Indication: MIGRAINE
     Dosage: 50MG AS REQUIRED
     Route: 048

REACTIONS (1)
  - MIGRAINE [None]
